FAERS Safety Report 5342050-7 (Version None)
Quarter: 2007Q2

REPORT INFORMATION
  Report Type: 
  Country: None (occurrence: None)
  Receive Date: 20070530
  Receipt Date: 20070530
  Transmission Date: 20071010
  Serious: No
  Sender: FDA-Public Use
  Company Number: None

PATIENT
  Age: 63 Year
  Sex: Male
  Weight: 89 kg

DRUGS (11)
  1. LEVOFLOXACIN [Suspect]
     Indication: URINARY TRACT INFECTION
     Dosage: PO
     Route: 048
     Dates: start: 20070214, end: 20070221
  2. LITHIUM CARBONATE [Concomitant]
  3. TAMSULOSIN HCL [Concomitant]
  4. SIMVASTATIN [Concomitant]
  5. CLOTRIMAZOLE [Concomitant]
  6. CICLOPIROX OLAMINE [Concomitant]
  7. FLUOCINONIDE [Concomitant]
  8. BRIMORIDINE [Concomitant]
  9. DORZOLAMIDE [Concomitant]
  10. TYLENOL [Concomitant]
  11. CENTRUM MVI [Concomitant]

REACTIONS (2)
  - IDIOPATHIC THROMBOCYTOPENIC PURPURA [None]
  - MEGAKARYOCYTES INCREASED [None]
